FAERS Safety Report 23788367 (Version 2)
Quarter: 2024Q3

REPORT INFORMATION
  Report Type: Spontaneous
  Country: CN (occurrence: CN)
  Receive Date: 20240426
  Receipt Date: 20240726
  Transmission Date: 20241017
  Serious: Yes (Other)
  Sender: PFIZER
  Company Number: CN-PFIZER INC-PV202400054204

PATIENT
  Age: 67 Year
  Sex: Male
  Weight: 72 kg

DRUGS (3)
  1. TYGACIL [Suspect]
     Active Substance: TIGECYCLINE
     Indication: Therapeutic procedure
     Dosage: 50.000 ML, 2X/DAY
     Route: 041
     Dates: start: 20240302
  2. TYGACIL [Suspect]
     Active Substance: TIGECYCLINE
     Indication: Bacterial infection
  3. AVIBACTAM SODIUM\CEFTAZIDIME [Concomitant]
     Active Substance: AVIBACTAM SODIUM\CEFTAZIDIME
     Indication: Therapeutic procedure
     Dosage: 2.500 G, 3X/DAY
     Route: 041
     Dates: start: 20240312, end: 20240323

REACTIONS (3)
  - Rash [Not Recovered/Not Resolved]
  - Jaundice [Recovering/Resolving]
  - Blood bilirubin increased [Recovering/Resolving]

NARRATIVE: CASE EVENT DATE: 20240303
